FAERS Safety Report 4745663-6 (Version None)
Quarter: 2005Q3

REPORT INFORMATION
  Report Type: 
  Country: None (occurrence: None)
  Receive Date: 20050811
  Receipt Date: 20050801
  Transmission Date: 20060218
  Serious: Yes (Hospitalization)
  Sender: FDA-Public Use
  Company Number: 2005110501

PATIENT
  Age: 59 Year
  Sex: Male

DRUGS (9)
  1. FLUCONAZOLE [Suspect]
     Indication: MUCOUS MEMBRANE DISORDER
     Dosage: (CYCLIC), ORAL
     Route: 048
     Dates: start: 20050502
  2. PREDNISONE [Suspect]
     Indication: ILL-DEFINED DISORDER
     Dosage: (CYCLIC), INTRAVENOUS
     Route: 042
     Dates: start: 20050301
  3. ZOLADEX [Suspect]
     Indication: ILL-DEFINED DISORDER
     Dosage: (CYCLIC), SUBCUTANEOUS
     Route: 058
     Dates: start: 20050301
  4. TAXOTERE [Suspect]
     Indication: ILL-DEFINED DISORDER
     Dosage: (CYCLIC), INTRAVENOUS
     Route: 042
     Dates: start: 20050311
  5. CASODEX [Suspect]
     Indication: ILL-DEFINED DISORDER
     Dosage: ORAL
     Route: 048
     Dates: start: 20050301
  6. ZOMETA [Suspect]
     Indication: ILL-DEFINED DISORDER
     Dosage: (CYCLIC), INTRAVENOUS
     Route: 042
     Dates: start: 20050301
  7. VALACICLOVIR HYDROCHLORIDE (VALACICLOVIR HYDROCHLORIDE) [Concomitant]
  8. NEXIUM [Concomitant]
  9. MORPHINE SULFATE [Concomitant]

REACTIONS (9)
  - BLOOD ALKALINE PHOSPHATASE INCREASED [None]
  - BLOOD LACTATE DEHYDROGENASE INCREASED [None]
  - CONDITION AGGRAVATED [None]
  - ERYTHRODERMIC PSORIASIS [None]
  - GAMMA-GLUTAMYLTRANSFERASE INCREASED [None]
  - HAEMOGLOBIN DECREASED [None]
  - MEAN CELL VOLUME INCREASED [None]
  - MUCOSAL INFLAMMATION [None]
  - TREATMENT NONCOMPLIANCE [None]
